FAERS Safety Report 18673975 (Version 2)
Quarter: 2021Q1

REPORT INFORMATION
  Report Type: Report from Study
  Country: CA (occurrence: CA)
  Receive Date: 20201228
  Receipt Date: 20210203
  Transmission Date: 20210419
  Serious: No
  Sender: FDA-Public Use
  Company Number: CA-NALPROPION PHARMACEUTICALS INC.-2020-011220

PATIENT

DRUGS (10)
  1. VIT D [Concomitant]
     Active Substance: VITAMIN D NOS
     Indication: ROUTINE HEALTH MAINTENANCE
     Dosage: DAILY (1 DOSAGE FORMS, 1 IN 1 D)
     Route: 048
  2. CONTRAVE [Suspect]
     Active Substance: BUPROPION HYDROCHLORIDE\NALTREXONE HYDROCHLORIDE
     Dosage: 90/8MG MG, TWO TAB MORNING, ONE TAB EVENING ???????2020
     Route: 048
     Dates: start: 20200814
  3. CONTRAVE [Suspect]
     Active Substance: BUPROPION HYDROCHLORIDE\NALTREXONE HYDROCHLORIDE
     Dosage: 90/8MG MG, START DATE: APPROXIMATELY18/SEP/2020, TWO TABLETS TWICE A DAY ???????2020
     Route: 048
     Dates: start: 202009
  4. CONTRAVE [Suspect]
     Active Substance: BUPROPION HYDROCHLORIDE\NALTREXONE HYDROCHLORIDE
     Dosage: 90/8MG, RESTARTED (1 DOSAGE FORMS, 1 IN 1 D)
     Route: 048
     Dates: start: 20210103, end: 20210109
  5. CONTRAVE [Suspect]
     Active Substance: BUPROPION HYDROCHLORIDE\NALTREXONE HYDROCHLORIDE
     Dosage: 90/8MG; 2 TABLETS BID
     Route: 048
     Dates: start: 2020, end: 20201130
  6. CONTRAVE [Suspect]
     Active Substance: BUPROPION HYDROCHLORIDE\NALTREXONE HYDROCHLORIDE
     Dosage: 90/8MG; RESTARTED (1 DOSAGE FORMS, 2 IN 1 D)
     Route: 048
     Dates: start: 20210110
  7. CONTRAVE [Suspect]
     Active Substance: BUPROPION HYDROCHLORIDE\NALTREXONE HYDROCHLORIDE
     Indication: WEIGHT CONTROL
     Dosage: 90/8MG MG; 1 TABLET DAILY
     Route: 048
     Dates: start: 20200731, end: 20200806
  8. CONTRAVE [Suspect]
     Active Substance: BUPROPION HYDROCHLORIDE\NALTREXONE HYDROCHLORIDE
     Dosage: 90/8MG MG; START DATE: APPROXIMATELY 26/OCT/2020; 1 TABLET TWICE DAILY ???????2020
     Route: 048
     Dates: start: 202010
  9. ATORVASTATIN [Concomitant]
     Active Substance: ATORVASTATIN
     Indication: BLOOD CHOLESTEROL
     Dosage: DAILY
     Route: 048
  10. CONTRAVE [Suspect]
     Active Substance: BUPROPION HYDROCHLORIDE\NALTREXONE HYDROCHLORIDE
     Dosage: 90/8MG MG; 1 TABLET TWICE DAILY
     Route: 048
     Dates: start: 20200807, end: 20200813

REACTIONS (14)
  - Endometrial hyperplasia [Not Recovered/Not Resolved]
  - Dry mouth [Not Recovered/Not Resolved]
  - Dysgeusia [Not Recovered/Not Resolved]
  - Anxiety [Unknown]
  - Cyst [Unknown]
  - Feeling abnormal [Unknown]
  - Constipation [Not Recovered/Not Resolved]
  - Drug titration error [Unknown]
  - Joint noise [Not Recovered/Not Resolved]
  - Taste disorder [Recovered/Resolved]
  - Depressed mood [Unknown]
  - Thirst [Not Recovered/Not Resolved]
  - Weight increased [Unknown]
  - Fatigue [Unknown]

NARRATIVE: CASE EVENT DATE: 2020
